FAERS Safety Report 18994539 (Version 7)
Quarter: 2021Q2

REPORT INFORMATION
  Report Type: Report from Study
  Country: KR (occurrence: KR)
  Receive Date: 20210310
  Receipt Date: 20210630
  Transmission Date: 20210717
  Serious: Yes (Hospitalization)
  Sender: FDA-Public Use
  Company Number: KR-EISAI MEDICAL RESEARCH-EC-2021-089117

PATIENT
  Age: 59 Year
  Sex: Male
  Weight: 67 kg

DRUGS (19)
  1. PEMBROLIZUMAB. [Suspect]
     Active Substance: PEMBROLIZUMAB
     Route: 042
     Dates: start: 20210215, end: 20210215
  2. NORVASC [Concomitant]
     Active Substance: AMLODIPINE BESYLATE
     Dates: start: 201801
  3. OMACOR [Concomitant]
     Active Substance: OMEGA-3-ACID ETHYL ESTERS
     Dates: start: 201801
  4. LYRICA [Concomitant]
     Active Substance: PREGABALIN
     Dates: start: 20201229
  5. LENVATINIB [Suspect]
     Active Substance: LENVATINIB
     Route: 048
     Dates: start: 20210318
  6. MEGACE F [Concomitant]
     Dates: start: 20210215
  7. MYPOL [CODEINE PHOSPHATE;IBUPROFEN;PARACETAMOL] [Concomitant]
     Dates: start: 20210122
  8. PEMBROLIZUMAB. [Suspect]
     Active Substance: PEMBROLIZUMAB
     Route: 042
     Dates: start: 20210305, end: 20210305
  9. TEICONIN [Concomitant]
     Route: 042
     Dates: start: 20210225, end: 20210226
  10. TAZOPERAN [Concomitant]
     Route: 042
     Dates: start: 20210225, end: 20210306
  11. TANTUM [BENZYDAMINE HYDROCHLORIDE] [Concomitant]
     Dates: start: 20210122
  12. MACPERAN [Concomitant]
     Active Substance: METOCLOPRAMIDE HYDROCHLORIDE
     Dates: start: 20210122
  13. VASTINAN MR [Concomitant]
     Dates: start: 201801
  14. LENVATINIB [Suspect]
     Active Substance: LENVATINIB
     Indication: BILE DUCT CANCER
     Route: 048
     Dates: start: 20210122, end: 20210224
  15. PEMBROLIZUMAB. [Suspect]
     Active Substance: PEMBROLIZUMAB
     Indication: BILE DUCT CANCER
     Route: 042
     Dates: start: 20210122, end: 20210122
  16. PEMBROLIZUMAB. [Suspect]
     Active Substance: PEMBROLIZUMAB
     Route: 042
     Dates: start: 20210324
  17. LYRICA [Concomitant]
     Active Substance: PREGABALIN
     Dates: start: 20201228
  18. NYSTATIN. [Concomitant]
     Active Substance: NYSTATIN
     Dates: start: 20210215, end: 20210302
  19. LIPITOR [Concomitant]
     Active Substance: ATORVASTATIN CALCIUM
     Dates: start: 201801

REACTIONS (1)
  - Abdominal pain [Recovered/Resolved]

NARRATIVE: CASE EVENT DATE: 20210225
